FAERS Safety Report 10057734 (Version 1)
Quarter: 2014Q2

REPORT INFORMATION
  Report Type: Spontaneous
  Country: US (occurrence: US)
  Receive Date: 20140404
  Receipt Date: 20140404
  Transmission Date: 20141212
  Serious: No
  Sender: FDA-Public Use
  Company Number: US-BIOGENIDEC-2014BI027669

PATIENT
  Age: 56 Year
  Sex: Female

DRUGS (2)
  1. TECFIDERA [Suspect]
     Indication: MULTIPLE SCLEROSIS
     Route: 048
     Dates: start: 20140227, end: 20140306
  2. TECFIDERA [Suspect]
     Indication: MULTIPLE SCLEROSIS
     Route: 048
     Dates: start: 20140307, end: 20140314

REACTIONS (12)
  - Feeling abnormal [Unknown]
  - Eyelid irritation [Unknown]
  - Oral discomfort [Unknown]
  - Ear discomfort [Unknown]
  - Mouth ulceration [Unknown]
  - Tongue ulceration [Unknown]
  - Asthenia [Unknown]
  - Gait disturbance [Unknown]
  - Flushing [Unknown]
  - Abdominal discomfort [Unknown]
  - Abdominal pain upper [Unknown]
  - Retching [Unknown]
